FAERS Safety Report 21917052 (Version 1)
Quarter: 2023Q1

REPORT INFORMATION
  Report Type: Spontaneous
  Country: CA (occurrence: CA)
  Receive Date: 20230126
  Receipt Date: 20230126
  Transmission Date: 20230417
  Serious: Yes (Death, Life-Threatening, Hospitalization)
  Sender: FDA-Public Use
  Company Number: CA-BAYER-2023A008058

PATIENT
  Age: 90 Year
  Sex: Female
  Weight: 43 kg

DRUGS (16)
  1. CIPRO [Suspect]
     Active Substance: CIPROFLOXACIN HYDROCHLORIDE
     Indication: Pneumonia
     Dosage: 750 MG, ONCE
     Route: 048
  2. PIPERACILLIN SODIUM\TAZOBACTAM SODIUM [Suspect]
     Active Substance: PIPERACILLIN SODIUM\TAZOBACTAM SODIUM
     Indication: Pneumonia
     Route: 042
  3. CALCIUM\CHOLECALCIFEROL [Concomitant]
     Active Substance: CALCIUM\CHOLECALCIFEROL
  4. GABAPENTIN [Concomitant]
     Active Substance: GABAPENTIN
  5. LATANOPROST [Concomitant]
     Active Substance: LATANOPROST
  6. POLYETHYLENE GLYCOLS [Concomitant]
     Active Substance: POLYETHYLENE GLYCOLS
  7. PANTOPRAZOLE [Concomitant]
     Active Substance: PANTOPRAZOLE
  8. LEVOTHYROXINE [Concomitant]
     Active Substance: LEVOTHYROXINE
  9. ACETAMINOPHEN [Concomitant]
     Active Substance: ACETAMINOPHEN
  10. MIDODRINE [Concomitant]
     Active Substance: MIDODRINE
  11. FERROUS SULFATE [Concomitant]
     Active Substance: FERROUS SULFATE
  12. ELIQUIS [Concomitant]
     Active Substance: APIXABAN
  13. DORZOLAMIDE [Concomitant]
     Active Substance: DORZOLAMIDE
  14. FUROSEMIDE [Concomitant]
     Active Substance: FUROSEMIDE
  15. MELATONIN [Concomitant]
     Active Substance: MELATONIN
  16. BISOPROLOL [Concomitant]
     Active Substance: BISOPROLOL

REACTIONS (3)
  - Clostridium difficile colitis [Fatal]
  - Septic shock [Fatal]
  - Hypovolaemic shock [Fatal]
